FAERS Safety Report 14587308 (Version 1)
Quarter: 2018Q1

REPORT INFORMATION
  Report Type: Spontaneous
  Country: US (occurrence: US)
  Receive Date: 20180228
  Receipt Date: 20180228
  Transmission Date: 20180509
  Serious: Yes (Other)
  Sender: FDA-Public Use
  Company Number: None

PATIENT
  Age: 70 Year
  Sex: Female
  Weight: 60.3 kg

DRUGS (8)
  1. CEFDINIR 300 MG CAPSULES [Suspect]
     Active Substance: CEFDINIR
     Indication: SINUSITIS
     Dosage: ?          QUANTITY:20 CAPSULE(S);?
     Route: 048
     Dates: start: 20180213, end: 20180216
  2. METOPROLOL TARTRATE. [Concomitant]
     Active Substance: METOPROLOL TARTRATE
  3. DULOXETINE DR [Concomitant]
     Active Substance: DULOXETINE
  4. ROPINIROLE. [Concomitant]
     Active Substance: ROPINIROLE
  5. TOPIRAMATE. [Concomitant]
     Active Substance: TOPIRAMATE
  6. COCONUT OIL [Concomitant]
     Active Substance: COCONUT OIL
  7. SIMVASTATIN. [Concomitant]
     Active Substance: SIMVASTATIN
  8. VITAMIN C [Concomitant]
     Active Substance: ASCORBIC ACID

REACTIONS (2)
  - Clostridium difficile infection [None]
  - Nausea [None]

NARRATIVE: CASE EVENT DATE: 20180216
